FAERS Safety Report 11976453 (Version 1)
Quarter: 2016Q1

REPORT INFORMATION
  Report Type: Spontaneous
  Country: US (occurrence: None)
  Receive Date: 20160128
  Receipt Date: 20160128
  Transmission Date: 20160526
  Serious: No
  Sender: FDA-Public Use
  Company Number: None

PATIENT
  Age: 82 Year
  Sex: Male
  Weight: 84.1 kg

DRUGS (1)
  1. ZOLEDRONIC [Suspect]
     Active Substance: ZOLEDRONIC ACID
     Route: 042
     Dates: start: 20151112, end: 20151112

REACTIONS (2)
  - Pyrexia [None]
  - Pain [None]

NARRATIVE: CASE EVENT DATE: 20151112
